FAERS Safety Report 16750026 (Version 1)
Quarter: 2019Q3

REPORT INFORMATION
  Report Type: Spontaneous
  Country: GB (occurrence: GB)
  Receive Date: 20190828
  Receipt Date: 20190828
  Transmission Date: 20191005
  Serious: Yes (Other)
  Sender: FDA-Public Use
  Company Number: PHHY2019GB196210

PATIENT
  Age: 85 Year
  Sex: Female

DRUGS (2)
  1. AMIODARONE [Concomitant]
     Active Substance: AMIODARONE
     Indication: ATRIAL FIBRILLATION
     Dosage: UNK
     Route: 065
  2. PREDNISOLONE. [Suspect]
     Active Substance: PREDNISOLONE
     Indication: THYROIDITIS
     Dosage: 40 MG, UNK
     Route: 065

REACTIONS (9)
  - Skin mass [Unknown]
  - Mycobacterium chelonae infection [Unknown]
  - Skin plaque [Unknown]
  - Skin lesion [Not Recovered/Not Resolved]
  - Oedema peripheral [Recovering/Resolving]
  - Product use in unapproved indication [Unknown]
  - Skin ulcer haemorrhage [Unknown]
  - Lymphoedema [Unknown]
  - Myopathy [Recovering/Resolving]
